FAERS Safety Report 23542213 (Version 1)
Quarter: 2024Q1

REPORT INFORMATION
  Report Type: Other
  Country: US (occurrence: None)
  Receive Date: 20240220
  Receipt Date: 20240220
  Transmission Date: 20240410
  Serious: No
  Sender: FDA-Public Use
  Company Number: US-ROCHE-3442968

PATIENT
  Age: 18 Year
  Sex: Female

DRUGS (6)
  1. ENTRECTINIB [Suspect]
     Active Substance: ENTRECTINIB
     Indication: Glioblastoma
     Route: 065
  2. ATEZOLIZUMAB [Suspect]
     Active Substance: ATEZOLIZUMAB
     Indication: Glioblastoma
     Route: 065
  3. CARBOPLATIN [Suspect]
     Active Substance: CARBOPLATIN
     Indication: Glioblastoma
     Route: 065
  4. ETOPOSIDE [Suspect]
     Active Substance: ETOPOSIDE
     Indication: Glioblastoma
     Route: 065
  5. CRIZOTINIB [Suspect]
     Active Substance: CRIZOTINIB
     Indication: Glioblastoma
     Route: 065
  6. TALAZOPARIB [Suspect]
     Active Substance: TALAZOPARIB
     Indication: Glioblastoma
     Route: 065

REACTIONS (1)
  - Disease progression [Unknown]
